FAERS Safety Report 18845935 (Version 1)
Quarter: 2021Q1

REPORT INFORMATION
  Report Type: Spontaneous
  Country: US (occurrence: US)
  Receive Date: 20210204
  Receipt Date: 20210204
  Transmission Date: 20210419
  Serious: Yes (Other)
  Sender: FDA-Public Use
  Company Number: None

PATIENT
  Age: 55 Year
  Sex: Male
  Weight: 76.5 kg

DRUGS (4)
  1. PROPRANOLOL ER 60 MG PO DAILY [Concomitant]
     Dates: start: 20190909
  2. DESVENFLAXINE 50 MG PO DAILY [Concomitant]
     Dates: start: 20190909
  3. FINASTERIDE TABLET [Suspect]
     Active Substance: FINASTERIDE
     Indication: ALOPECIA
     Route: 048
  4. CLONAZEPAM 0.25 MG PO BID [Concomitant]
     Dates: start: 20180806

REACTIONS (2)
  - Blood testosterone decreased [None]
  - Depression [None]

NARRATIVE: CASE EVENT DATE: 20201005
